FAERS Safety Report 6782313-1 (Version None)
Quarter: 2010Q2

REPORT INFORMATION
  Report Type: 
  Country: None (occurrence: None)
  Receive Date: 20100621
  Receipt Date: 20100513
  Transmission Date: 20101027
  Serious: Yes (Death, Other)
  Sender: FDA-Public Use
  Company Number: US-BAXTER-2008BH002697

PATIENT
  Age: 42 Year
  Sex: Female

DRUGS (42)
  1. HEPARIN SODIUM [Suspect]
     Indication: HAEMODIALYSIS
     Route: 010
     Dates: start: 20080101, end: 20080401
  2. HEPARIN SODIUM [Suspect]
     Route: 010
     Dates: start: 20080101, end: 20080401
  3. HEPARIN SODIUM [Suspect]
     Route: 010
     Dates: start: 20080101, end: 20080401
  4. HEPARIN SODIUM [Suspect]
     Route: 010
     Dates: start: 20080101, end: 20080401
  5. HEPARIN SODIUM [Suspect]
     Route: 065
     Dates: start: 20080401
  6. ANTIBIOTICS [Concomitant]
     Indication: DRUG USE FOR UNKNOWN INDICATION
     Route: 065
  7. CORTICOSTEROIDS [Concomitant]
     Indication: DRUG USE FOR UNKNOWN INDICATION
     Route: 065
  8. IRON [Concomitant]
     Indication: DRUG USE FOR UNKNOWN INDICATION
     Route: 065
  9. TRILEPTAL [Concomitant]
     Indication: DRUG USE FOR UNKNOWN INDICATION
     Route: 048
  10. LAMICTAL [Concomitant]
     Indication: DRUG USE FOR UNKNOWN INDICATION
     Route: 048
  11. LAMICTAL [Concomitant]
     Route: 048
  12. PEPCID [Concomitant]
     Indication: DRUG USE FOR UNKNOWN INDICATION
     Route: 065
  13. SODIUM BICARBONATE [Concomitant]
     Indication: DRUG USE FOR UNKNOWN INDICATION
     Route: 048
  14. PHENOBARB [Concomitant]
     Indication: DRUG USE FOR UNKNOWN INDICATION
     Route: 048
  15. SYNTHROID [Concomitant]
     Indication: DRUG USE FOR UNKNOWN INDICATION
     Route: 065
  16. PANTOPRAZOLE [Concomitant]
     Indication: DRUG USE FOR UNKNOWN INDICATION
     Route: 048
  17. TRAZODONE HYDROCHLORIDE [Concomitant]
     Indication: DRUG USE FOR UNKNOWN INDICATION
     Route: 048
  18. ZOLOFT [Concomitant]
     Indication: DRUG USE FOR UNKNOWN INDICATION
     Route: 048
  19. NEPHROCAPS [Concomitant]
     Indication: DRUG USE FOR UNKNOWN INDICATION
     Route: 048
  20. LOPRESSOR [Concomitant]
     Indication: DRUG USE FOR UNKNOWN INDICATION
     Route: 048
  21. LASIX [Concomitant]
     Indication: DRUG USE FOR UNKNOWN INDICATION
     Route: 048
  22. LASIX [Concomitant]
     Route: 048
  23. RENAGEL [Concomitant]
     Indication: DRUG USE FOR UNKNOWN INDICATION
     Route: 048
  24. ATIVAN [Concomitant]
     Indication: DRUG USE FOR UNKNOWN INDICATION
     Route: 065
  25. ATIVAN [Concomitant]
     Route: 065
  26. VALIUM [Concomitant]
     Indication: DRUG USE FOR UNKNOWN INDICATION
     Route: 065
  27. PLETAL [Concomitant]
     Indication: DRUG USE FOR UNKNOWN INDICATION
     Route: 048
  28. IMODIUM A-D [Concomitant]
     Indication: DRUG USE FOR UNKNOWN INDICATION
     Route: 048
  29. BACTOPEN [Concomitant]
     Indication: DRUG USE FOR UNKNOWN INDICATION
     Route: 048
  30. MIRALAX [Concomitant]
     Indication: DRUG USE FOR UNKNOWN INDICATION
     Route: 048
  31. MORPHINE SULFATE [Concomitant]
     Indication: DRUG USE FOR UNKNOWN INDICATION
     Route: 058
  32. NEXIUM [Concomitant]
     Indication: DRUG USE FOR UNKNOWN INDICATION
     Route: 048
  33. VITAMIN C [Concomitant]
     Indication: DRUG USE FOR UNKNOWN INDICATION
     Route: 048
  34. VITAMIN E [Concomitant]
     Indication: DRUG USE FOR UNKNOWN INDICATION
     Route: 048
  35. ZOFRAN [Concomitant]
     Indication: DRUG USE FOR UNKNOWN INDICATION
     Route: 048
  36. ASPIRIN [Concomitant]
     Indication: DRUG USE FOR UNKNOWN INDICATION
     Route: 048
  37. SENOKOT                                 /USA/ [Concomitant]
     Indication: DRUG USE FOR UNKNOWN INDICATION
     Route: 048
  38. BACTROBAN [Concomitant]
     Indication: DRUG USE FOR UNKNOWN INDICATION
     Route: 061
  39. PHENERGAN [Concomitant]
     Indication: DRUG USE FOR UNKNOWN INDICATION
     Route: 048
  40. GENTAMICIN [Concomitant]
     Indication: DRUG USE FOR UNKNOWN INDICATION
     Route: 047
  41. GENTAMICIN [Concomitant]
     Route: 047
  42. SYNTHROID [Concomitant]
     Route: 048

REACTIONS (11)
  - ABDOMINAL PAIN [None]
  - CARDIO-RESPIRATORY ARREST [None]
  - CONVULSION [None]
  - DEATH [None]
  - DIARRHOEA [None]
  - DYSPNOEA [None]
  - HYPOTENSION [None]
  - MALAISE [None]
  - NAUSEA [None]
  - RENAL FAILURE [None]
  - VOMITING [None]
